FAERS Safety Report 8942052 (Version 1)
Quarter: 2012Q4

REPORT INFORMATION
  Report Type: 
  Country: GB (occurrence: GB)
  Receive Date: 20121203
  Receipt Date: 20121203
  Transmission Date: 20130627
  Serious: Yes (Other)
  Sender: FDA-Public Use
  Company Number: GB-PFIZER INC-2012301583

PATIENT
  Age: 42 Year
  Sex: Female
  Weight: 57.15 kg

DRUGS (4)
  1. CHAMPIX [Suspect]
     Route: 048
     Dates: start: 20121031, end: 20121108
  2. SIMVASTATIN [Concomitant]
  3. PAROXETINE [Concomitant]
  4. INSULIN [Concomitant]

REACTIONS (3)
  - Suicidal ideation [Recovered/Resolved]
  - Depressed mood [Recovered/Resolved]
  - Negative thoughts [Recovered/Resolved]
